FAERS Safety Report 10416618 (Version 1)
Quarter: 2014Q3

REPORT INFORMATION
  Report Type: Spontaneous
  Country: FR (occurrence: FR)
  Receive Date: 20140828
  Receipt Date: 20140828
  Transmission Date: 20150326
  Serious: Yes (Life-Threatening, Hospitalization)
  Sender: FDA-Public Use
  Company Number: FR-PFIZER INC-2014234986

PATIENT
  Age: 30 Year
  Sex: Male

DRUGS (12)
  1. SPECIAFOLDINE [Concomitant]
     Active Substance: FOLIC ACID
  2. FUNGIZONE [Concomitant]
     Active Substance: AMPHOTERICIN B
  3. UN-ALFA [Concomitant]
  4. KARDEGIC [Concomitant]
     Active Substance: ASPIRIN LYSINE
  5. MOPRAL [Concomitant]
     Active Substance: OMEPRAZOLE SODIUM
  6. TRIFLUCAN [Suspect]
     Active Substance: FLUCONAZOLE
     Indication: PROPHYLAXIS
     Dosage: 100 MG, 2X/DAY
     Route: 048
     Dates: start: 20110330, end: 20110530
  7. CELLCEPT [Interacting]
     Active Substance: MYCOPHENOLATE MOFETIL\MYCOPHENOLATE MOFETIL HYDROCHLORIDE
     Dosage: 1 G, ALTERNATE DAY
     Route: 048
     Dates: start: 20110330
  8. PENTACARINAT [Concomitant]
     Active Substance: PENTAMIDINE ISETHIONATE
  9. PROGRAF [Interacting]
     Active Substance: TACROLIMUS\TACROLIMUS ANHYDROUS
     Indication: RENAL AND PANCREAS TRANSPLANT
     Dosage: UNK
     Route: 048
     Dates: start: 20110330
  10. CORTANCYL [Interacting]
     Active Substance: PREDNISONE
     Dosage: 25 MG, 1X/DAY
     Route: 048
     Dates: start: 20110330
  11. ROVALCYTE [Concomitant]
     Active Substance: VALGANCICLOVIR HYDROCHLORIDE
  12. NEORECORMON [Concomitant]
     Active Substance: ERYTHROPOIETIN

REACTIONS (6)
  - Disseminated intravascular coagulation [Recovered/Resolved]
  - Drug interaction [Recovered/Resolved with Sequelae]
  - Candida infection [Recovered/Resolved with Sequelae]
  - Peritoneal haemorrhage [Recovered/Resolved with Sequelae]
  - Mycotic aneurysm [Recovered/Resolved with Sequelae]
  - Graft loss [Recovered/Resolved with Sequelae]

NARRATIVE: CASE EVENT DATE: 20110530
